FAERS Safety Report 6758651-5 (Version None)
Quarter: 2010Q2

REPORT INFORMATION
  Report Type: 
  Country: None (occurrence: None)
  Receive Date: 20100607
  Receipt Date: 20100528
  Transmission Date: 20101027
  Serious: Yes (Other)
  Sender: FDA-Public Use
  Company Number: US-SANOFI-AVENTIS-2010SA031563

PATIENT
  Age: 70 Year
  Sex: Male

DRUGS (4)
  1. LANTUS [Suspect]
     Dosage: DOSE:75 UNIT(S)
     Route: 058
     Dates: start: 20080101
  2. OPTICLICK [Suspect]
     Dates: start: 20080101
  3. HUMULIN 70/30 [Concomitant]
  4. DRUG USED IN DIABETES [Concomitant]

REACTIONS (2)
  - FALL [None]
  - FOOT FRACTURE [None]
